FAERS Safety Report 17219867 (Version 1)
Quarter: 2019Q4

REPORT INFORMATION
  Report Type: Report from Study
  Country: ES (occurrence: ES)
  Receive Date: 20191231
  Receipt Date: 20191231
  Transmission Date: 20200122
  Serious: Yes (Life-Threatening, Hospitalization)
  Sender: FDA-Public Use
  Company Number: ES-MYLANLABS-2019M1132326

PATIENT
  Age: 50 Year
  Sex: Female

DRUGS (5)
  1. ANAFRANIL [Interacting]
     Active Substance: CLOMIPRAMINE HYDROCHLORIDE
     Indication: ADJUSTMENT DISORDER WITH ANXIETY
     Dosage: 2.5 GRAM
     Route: 048
     Dates: start: 20190516, end: 20190516
  2. QUETIAPINE. [Suspect]
     Active Substance: QUETIAPINE
     Indication: ADJUSTMENT DISORDER WITH ANXIETY
     Dosage: 3 GRAM
     Route: 048
     Dates: start: 20190516, end: 20190516
  3. CLONAZEPAM. [Interacting]
     Active Substance: CLONAZEPAM
     Indication: ADJUSTMENT DISORDER WITH ANXIETY
     Dosage: 84 MILLIGRAM, QD
     Route: 048
     Dates: start: 20190516, end: 20190516
  4. ENALAPRIL + HIDROCLOROTIAZIDA [Concomitant]
     Active Substance: ENALAPRIL MALEATE\HYDROCHLOROTHIAZIDE
     Indication: HYPERTENSION
     Dosage: 1 DOSAGE FORM, QD
     Route: 048
     Dates: start: 201509, end: 20190516
  5. NAPROXENO                          /00256201/ [Concomitant]
     Active Substance: NAPROXEN
     Dosage: 20 GRAM
     Route: 048
     Dates: start: 20190516, end: 20190516

REACTIONS (3)
  - Drug interaction [Unknown]
  - Depressed level of consciousness [Recovered/Resolved]
  - Intentional overdose [Recovered/Resolved]

NARRATIVE: CASE EVENT DATE: 20190516
